FAERS Safety Report 14622200 (Version 1)
Quarter: 2018Q1

REPORT INFORMATION
  Report Type: Spontaneous
  Country: US (occurrence: US)
  Receive Date: 20180311
  Receipt Date: 20180311
  Transmission Date: 20180509
  Serious: No
  Sender: FDA-Public Use
  Company Number: US-BIOGEN-2015BI156806

PATIENT
  Sex: Female

DRUGS (1)
  1. TECFIDERA [Suspect]
     Active Substance: DIMETHYL FUMARATE
     Indication: MULTIPLE SCLEROSIS
     Dosage: MAINTENANCE DOSE
     Route: 048
     Dates: start: 20141125, end: 20151124

REACTIONS (5)
  - Myalgia [Unknown]
  - Nerve injury [Unknown]
  - Neuralgia [Unknown]
  - Muscle tightness [Unknown]
  - Gait disturbance [Unknown]
